FAERS Safety Report 8088991-1 (Version None)
Quarter: 2012Q1

REPORT INFORMATION
  Report Type: 
  Country: None (occurrence: None)
  Receive Date: 20120128
  Receipt Date: 20110705
  Transmission Date: 20120608
  Serious: No
  Sender: FDA-Public Use
  Company Number: US-ABBOTT-11P-163-0837225-00

PATIENT
  Sex: Female
  Weight: 36.774 kg

DRUGS (27)
  1. PROMETHAZINE [Concomitant]
     Indication: NAUSEA
     Dosage: EVERY FOUR TO SIX HOURS AS NEEDED
  2. VOLTAREN [Concomitant]
     Indication: PAIN
  3. LISINOPRIL [Concomitant]
     Indication: PRODUCT USED FOR UNKNOWN INDICATION
     Route: 048
  4. OXYGEN [Concomitant]
     Indication: DYSPNOEA
  5. LOVAZA [Concomitant]
     Indication: PRODUCT USED FOR UNKNOWN INDICATION
     Dosage: TUESDAY, THURSDAY, SATURDAY
     Route: 048
  6. CALCIUM [Concomitant]
     Indication: MINERAL SUPPLEMENTATION
     Dosage: ONCE DAILY, CHEW
     Route: 048
  7. VITAMIN B-12 [Concomitant]
     Route: 060
  8. PRISTIQ [Concomitant]
     Indication: PRODUCT USED FOR UNKNOWN INDICATION
     Route: 048
  9. ALOE VERA LINIMENT [Concomitant]
     Indication: PAIN
  10. PROMETHAZINE [Concomitant]
     Indication: VOMITING
  11. HYDROCODONE BITARTRATE [Concomitant]
     Indication: PAIN
     Dosage: 5/500MG ONCE EVERY EIGHT HOURS AS NEEDED.
     Route: 048
  12. FLECTOR [Concomitant]
     Indication: PAIN
     Dosage: 12 HOURS ON AND 12 HOURS OFF AS NEEDED
  13. OXYGEN [Concomitant]
     Indication: CHRONIC OBSTRUCTIVE PULMONARY DISEASE
     Dosage: TWO TO FOUR LITERS AS NEEDED
  14. CYPROHEPPADINE [Concomitant]
     Indication: PRODUCT USED FOR UNKNOWN INDICATION
     Route: 048
  15. FOLBEE [Concomitant]
     Indication: PRODUCT USED FOR UNKNOWN INDICATION
     Route: 048
  16. VITAMIN D [Concomitant]
     Indication: PRODUCT USED FOR UNKNOWN INDICATION
     Route: 048
  17. NEXIUM [Concomitant]
     Indication: PRODUCT USED FOR UNKNOWN INDICATION
     Route: 048
  18. HUMIRA [Suspect]
     Indication: RHEUMATOID ARTHRITIS
     Route: 058
     Dates: start: 20110616
  19. VITAMIN B-12 [Concomitant]
     Indication: VITAMIN SUPPLEMENTATION
     Dosage: 1000MCG PER ML, ONCE EVERY FOUR WEEKS
     Route: 050
  20. ADVAIR DISKUS 100/50 [Concomitant]
     Indication: CHRONIC OBSTRUCTIVE PULMONARY DISEASE
     Dosage: ONE INHALATION OF 250/50 MG
     Route: 055
  21. GLUCOSAMINE PLUS [Concomitant]
     Indication: PRODUCT USED FOR UNKNOWN INDICATION
     Dosage: MONDAY, WEDNESDAY, FRIDAY
  22. AMITIZA [Concomitant]
     Indication: PRODUCT USED FOR UNKNOWN INDICATION
     Route: 048
  23. PREDNISONE TAB [Concomitant]
     Indication: CHRONIC OBSTRUCTIVE PULMONARY DISEASE
     Route: 048
  24. DOCUSATE SODIUM [Concomitant]
     Indication: PRODUCT USED FOR UNKNOWN INDICATION
     Route: 048
  25. XANAX [Concomitant]
     Indication: ANXIETY
     Dosage: ONCE EVERY 12 HOURS AS NEEDED
     Route: 048
  26. VENTOLIN [Concomitant]
     Indication: PRODUCT USED FOR UNKNOWN INDICATION
     Route: 048
  27. TRAMADOL HCL [Concomitant]
     Indication: PRODUCT USED FOR UNKNOWN INDICATION
     Route: 048

REACTIONS (1)
  - DYSPNOEA [None]
